FAERS Safety Report 7239321-6 (Version None)
Quarter: 2011Q1

REPORT INFORMATION
  Report Type: 
  Country: None (occurrence: None)
  Receive Date: 20110121
  Receipt Date: 20110114
  Transmission Date: 20110831
  Serious: Yes (Other)
  Sender: FDA-Public Use
  Company Number: US-CEPHALON-2010006298

PATIENT
  Sex: Female

DRUGS (3)
  1. NUVIGIL [Suspect]
     Indication: SLEEP APNOEA SYNDROME
     Route: 048
     Dates: start: 20100722
  2. NUVIGIL [Suspect]
     Route: 048
     Dates: start: 20100826, end: 20101101
  3. FLU SHOT [Concomitant]

REACTIONS (1)
  - FACIAL NERVE DISORDER [None]
